FAERS Safety Report 4896419-5 (Version None)
Quarter: 2006Q1

REPORT INFORMATION
  Report Type: 
  Country: None (occurrence: None)
  Receive Date: 20060126
  Receipt Date: 20060117
  Transmission Date: 20060701
  Serious: Yes (Hospitalization, Other)
  Sender: FDA-Public Use
  Company Number: 2005089344

PATIENT
  Age: 63 Year
  Sex: Female

DRUGS (8)
  1. CELEBREX [Suspect]
     Indication: ILL-DEFINED DISORDER
     Dates: start: 20030201
  2. SINGULAIR ^DIECKMANN^ (MONTELUKAST SODIUM) [Concomitant]
  3. ATROVENT [Concomitant]
  4. ALL OTHER THERAPEUTIC PRODUCTS (ALL OTHER THERAPEUTIC PRODUCTS) [Concomitant]
  5. ALBUTEROL [Concomitant]
  6. GEMFIBROZIL [Concomitant]
  7. FLOVENT [Concomitant]
  8. TIAZAC [Concomitant]

REACTIONS (4)
  - CAROTID ARTERY DISEASE [None]
  - CEREBROVASCULAR ACCIDENT [None]
  - THROMBOSIS [None]
  - TRANSIENT ISCHAEMIC ATTACK [None]
